FAERS Safety Report 9668240 (Version 1)
Quarter: 2013Q4

REPORT INFORMATION
  Report Type: Report from Study
  Country: PR (occurrence: PR)
  Receive Date: 20131104
  Receipt Date: 20131104
  Transmission Date: 20140711
  Serious: Yes (Hospitalization, Other)
  Sender: FDA-Public Use
  Company Number: PR-ABBVIE-13P-131-1163051-00

PATIENT
  Sex: Female
  Weight: 71.73 kg

DRUGS (10)
  1. HUMIRA [Suspect]
     Indication: PRODUCT USED FOR UNKNOWN INDICATION
     Dates: start: 2008, end: 20130925
  2. SYNTHROID [Concomitant]
     Indication: THYROID DISORDER
     Route: 048
  3. AVALIDE [Concomitant]
     Indication: HYPERTENSION
     Route: 048
  4. METHOTREXATE [Concomitant]
     Indication: RHEUMATOID ARTHRITIS
     Route: 050
  5. FOLIC ACID [Concomitant]
     Indication: VITAMIN SUPPLEMENTATION
     Route: 048
  6. OMEGA 3 [Concomitant]
     Indication: VITAMIN SUPPLEMENTATION
     Route: 048
  7. VITAMIN D [Concomitant]
     Indication: VITAMIN SUPPLEMENTATION
     Route: 048
  8. VITAMIN E [Concomitant]
     Indication: VITAMIN SUPPLEMENTATION
     Route: 048
  9. GLUCOSAMINE CHONDROITIN MSM [Concomitant]
     Indication: SUPPLEMENTATION THERAPY
     Route: 048
  10. LIVERPLEX [Concomitant]
     Indication: SUPPLEMENTATION THERAPY
     Route: 048

REACTIONS (1)
  - Haemorrhoids [Recovered/Resolved]
